FAERS Safety Report 17300326 (Version 1)
Quarter: 2020Q1

REPORT INFORMATION
  Report Type: Spontaneous
  Country: US (occurrence: US)
  Receive Date: 20200122
  Receipt Date: 20200122
  Transmission Date: 20200409
  Serious: No
  Sender: FDA-Public Use
  Company Number: US-ALLERGAN-1900938US

PATIENT
  Age: 73 Year
  Sex: Female

DRUGS (2)
  1. RESTASIS [Suspect]
     Active Substance: CYCLOSPORINE
     Indication: PRODUCT USED FOR UNKNOWN INDICATION
     Dosage: UNKNOWN
     Route: 047
     Dates: start: 20190101
  2. RESTASIS [Suspect]
     Active Substance: CYCLOSPORINE
     Dosage: UNK, BID
     Route: 047
     Dates: start: 20181223

REACTIONS (2)
  - Accidental exposure to product [Unknown]
  - Product container issue [Unknown]
